FAERS Safety Report 6680623-X (Version None)
Quarter: 2010Q2

REPORT INFORMATION
  Report Type: 
  Country: None (occurrence: None)
  Receive Date: 20100414
  Receipt Date: 20100405
  Transmission Date: 20101027
  Serious: No
  Sender: FDA-Public Use
  Company Number: 2009BI021645

PATIENT
  Sex: Female

DRUGS (2)
  1. TYSABRI [Suspect]
     Indication: MULTIPLE SCLEROSIS
     Route: 042
     Dates: start: 20071010, end: 20091201
  2. TYSABRI [Suspect]
     Route: 042
     Dates: start: 20100201, end: 20100201

REACTIONS (8)
  - DIZZINESS [None]
  - INFECTION [None]
  - INFECTIOUS MONONUCLEOSIS [None]
  - INFLUENZA [None]
  - LARYNGITIS [None]
  - NAUSEA [None]
  - SINUSITIS [None]
  - SPINAL DISORDER [None]
